FAERS Safety Report 17984521 (Version 2)
Quarter: 2020Q3

REPORT INFORMATION
  Report Type: Spontaneous
  Country: PT (occurrence: PT)
  Receive Date: 20200706
  Receipt Date: 20200714
  Transmission Date: 20201103
  Serious: Yes (Other)
  Sender: FDA-Public Use
  Company Number: PT-PFIZER INC-2020257469

PATIENT
  Age: 62 Year
  Sex: Female

DRUGS (2)
  1. LORLATINIB [Suspect]
     Active Substance: LORLATINIB
     Dosage: 100 MG, DAILY
  2. LORLATINIB [Suspect]
     Active Substance: LORLATINIB
     Dosage: 75 MG, DAILY

REACTIONS (4)
  - Hypercholesterolaemia [Recovered/Resolved]
  - Hallucination, auditory [Recovered/Resolved]
  - Insomnia [Recovered/Resolved]
  - Affective disorder [Recovered/Resolved]
